FAERS Safety Report 12592300 (Version 1)
Quarter: 2016Q3

REPORT INFORMATION
  Report Type: Spontaneous
  Country: US (occurrence: None)
  Receive Date: 20160725
  Receipt Date: 20160725
  Transmission Date: 20161109
  Serious: No
  Sender: FDA-Public Use
  Company Number: None

PATIENT

DRUGS (1)
  1. GONIOVISC OPHTHALMIC LUBRICANT [Suspect]
     Active Substance: HYPROMELLOSES

REACTIONS (2)
  - Eye burns [None]
  - Product formulation issue [None]
